FAERS Safety Report 6039060-3 (Version None)
Quarter: 2009Q1

REPORT INFORMATION
  Report Type: 
  Country: None (occurrence: None)
  Receive Date: 20090115
  Receipt Date: 20090107
  Transmission Date: 20090719
  Serious: Yes (Death)
  Sender: FDA-Public Use
  Company Number: AU-ELI_LILLY_AND_COMPANY-AU200901000605

PATIENT
  Age: 54 Year
  Sex: Male

DRUGS (7)
  1. CIALIS [Suspect]
     Indication: ERECTILE DYSFUNCTION
     Dosage: 20 MG, UNKNOWN
     Route: 048
     Dates: start: 20080901
  2. TADALAFIL [Suspect]
     Indication: ERECTILE DYSFUNCTION
     Dosage: 50 MG, UNKNOWN
     Route: 048
  3. CRESTOR [Concomitant]
     Dosage: 10 MG, UNKNOWN
     Route: 065
  4. KARVEZIDE [Concomitant]
     Dosage: 300 MG, UNKNOWN
     Route: 065
  5. OLMETEC [Concomitant]
     Dosage: 40 MG, UNKNOWN
     Route: 065
  6. TESTOSTERONE [Concomitant]
     Dosage: 1000 MG, UNKNOWN
     Route: 065
  7. ZANIDIP [Concomitant]
     Dosage: 10 MG, UNKNOWN
     Route: 065

REACTIONS (1)
  - SUDDEN DEATH [None]
